FAERS Safety Report 9079205 (Version 2)
Quarter: 2013Q3

REPORT INFORMATION
  Report Type: Spontaneous
  Country: US (occurrence: US)
  Receive Date: 20130215
  Receipt Date: 20130716
  Transmission Date: 20140515
  Serious: Yes (Hospitalization, Other)
  Sender: FDA-Public Use
  Company Number: US-PFIZER INC-2013056283

PATIENT
  Age: 54 Month
  Sex: Male
  Weight: 14.97 kg

DRUGS (2)
  1. BENEFIX [Suspect]
     Indication: FACTOR IX DEFICIENCY
     Dosage: 100 IU/KG, PER WEEK INFUSING 2X/WEEK
  2. BENEFIX [Suspect]
     Dosage: UNK, 50/KG EVERY 3DAYS
     Route: 042

REACTIONS (3)
  - Haemorrhage [Unknown]
  - Disease complication [Unknown]
  - Off label use [Unknown]
